FAERS Safety Report 8178734-5 (Version None)
Quarter: 2012Q1

REPORT INFORMATION
  Report Type: 
  Country: None (occurrence: None)
  Receive Date: 20120301
  Receipt Date: 20120301
  Transmission Date: 20120608
  Serious: Yes (Hospitalization)
  Sender: FDA-Public Use
  Company Number: None

PATIENT
  Age: 72 Year
  Sex: Female
  Weight: 99.79 kg

DRUGS (1)
  1. RECLAST [Suspect]
     Indication: OSTEOPOROSIS
     Dates: start: 20120222, end: 20120222

REACTIONS (13)
  - DEHYDRATION [None]
  - JOINT SWELLING [None]
  - DYSPNOEA [None]
  - FATIGUE [None]
  - FEELING ABNORMAL [None]
  - RENAL IMPAIRMENT [None]
  - HYPOAESTHESIA [None]
  - ABASIA [None]
  - STOMATITIS [None]
  - CHEST PAIN [None]
  - INFLUENZA LIKE ILLNESS [None]
  - BONE PAIN [None]
  - PAIN [None]
